FAERS Safety Report 13792453 (Version 1)
Quarter: 2017Q3

REPORT INFORMATION
  Report Type: Spontaneous
  Country: US (occurrence: US)
  Receive Date: 20170724
  Receipt Date: 20170724
  Transmission Date: 20171127
  Serious: No
  Sender: FDA-Public Use
  Company Number: None

PATIENT
  Age: 26 Year
  Sex: Male
  Weight: 65.25 kg

DRUGS (1)
  1. TOMS NATURALLY DRY ANTIPERSPIRANT DEODORANT - NORTHWOODS WETNESS PROTECTION [Suspect]
     Active Substance: ALUMINUM CHLOROHYDRATE
     Indication: SKIN ODOUR ABNORMAL
     Dates: start: 20170720, end: 20170723

REACTIONS (2)
  - Rash [None]
  - Discomfort [None]

NARRATIVE: CASE EVENT DATE: 20170724
